FAERS Safety Report 20778502 (Version 1)
Quarter: 2022Q2

REPORT INFORMATION
  Report Type: Spontaneous
  Country: JP (occurrence: JP)
  Receive Date: 20220503
  Receipt Date: 20220503
  Transmission Date: 20220721
  Serious: Yes (Other)
  Sender: FDA-Public Use
  Company Number: JP-PFIZER INC-202200617982

PATIENT
  Age: 32 Year
  Sex: Female

DRUGS (3)
  1. CABERGOLINE [Suspect]
     Active Substance: CABERGOLINE
     Indication: Lactation inhibition therapy
     Route: 048
  2. INSULIN LISPRO [Suspect]
     Active Substance: INSULIN LISPRO
  3. INSULIN DEGLUDEC [Suspect]
     Active Substance: INSULIN DEGLUDEC

REACTIONS (2)
  - Pancreatic disorder [Unknown]
  - Impaired insulin secretion [Unknown]
